FAERS Safety Report 4969025-1 (Version None)
Quarter: 2006Q2

REPORT INFORMATION
  Report Type: 
  Country: None (occurrence: None)
  Receive Date: 20060411
  Receipt Date: 20060311
  Transmission Date: 20061013
  Serious: Yes (Other)
  Sender: FDA-Public Use
  Company Number: JP-MERCK-0603USA03729

PATIENT
  Age: 49 Year
  Sex: Male

DRUGS (10)
  1. MAXALT-MLT [Suspect]
     Indication: MIGRAINE
     Route: 048
     Dates: start: 20060303, end: 20060303
  2. MAXALT-MLT [Suspect]
     Route: 048
     Dates: start: 20060304, end: 20060304
  3. MAXALT-MLT [Suspect]
     Route: 048
     Dates: start: 20060305, end: 20060305
  4. MAXALT-MLT [Suspect]
     Route: 048
     Dates: start: 20060306, end: 20060306
  5. MAXALT-MLT [Suspect]
     Route: 048
     Dates: start: 20060307, end: 20060307
  6. MAXALT-MLT [Suspect]
     Route: 048
     Dates: start: 20060309, end: 20060309
  7. MAXALT-MLT [Suspect]
     Route: 048
     Dates: start: 20060310, end: 20060310
  8. MAXALT-MLT [Suspect]
     Route: 048
  9. DEPAKENE [Concomitant]
     Route: 048
     Dates: start: 20050101
  10. INDOMETHACIN [Concomitant]
     Route: 054
     Dates: start: 20060304, end: 20060305

REACTIONS (4)
  - CONDITION AGGRAVATED [None]
  - MIGRAINE [None]
  - MUSCLE TIGHTNESS [None]
  - MUSCULOSKELETAL STIFFNESS [None]
